FAERS Safety Report 18677358 (Version 2)
Quarter: 2021Q1

REPORT INFORMATION
  Report Type: Report from Study
  Country: US (occurrence: US)
  Receive Date: 20201229
  Receipt Date: 20210305
  Transmission Date: 20210419
  Serious: Yes (Hospitalization)
  Sender: FDA-Public Use
  Company Number: US-TAKEDA-2020TUS059721

PATIENT
  Age: 59 Year
  Sex: Female
  Weight: 86 kg

DRUGS (8)
  1. BORTEZOMIB. [Suspect]
     Active Substance: BORTEZOMIB
     Indication: PLASMA CELL MYELOMA
     Dosage: 1 MILLIGRAM/SQ. METER
     Route: 058
     Dates: start: 20200529, end: 20200624
  2. ADRIAMYCIN [Concomitant]
     Active Substance: DOXORUBICIN HYDROCHLORIDE
     Dosage: 10 MILLIGRAM/SQ. METER
     Route: 042
     Dates: start: 20200529, end: 20200624
  3. ZOLEDRONIC ACID [Concomitant]
     Active Substance: ZOLEDRONIC ACID
     Dosage: UNK
     Route: 065
  4. PLATINOL [Concomitant]
     Active Substance: CISPLATIN
     Dosage: 10 MILLIGRAM/SQ. METER
     Route: 042
     Dates: start: 20200529, end: 20200624
  5. APIXABAN [Concomitant]
     Active Substance: APIXABAN
     Dosage: UNK
     Route: 065
  6. DECADRON [Concomitant]
     Active Substance: DEXAMETHASONE
     Dosage: 40 MILLIGRAM
     Route: 048
     Dates: start: 20200529, end: 20200624
  7. CYTOXAN [Concomitant]
     Active Substance: CYCLOPHOSPHAMIDE
     Dosage: 400 MILLIGRAM/SQ. METER
     Route: 042
     Dates: start: 20200529, end: 20200624
  8. ETOPOSIDE. [Concomitant]
     Active Substance: ETOPOSIDE
     Dosage: 40 MILLIGRAM/SQ. METER
     Route: 042
     Dates: start: 20200529, end: 20200624

REACTIONS (1)
  - Stomatitis [Recovered/Resolved]

NARRATIVE: CASE EVENT DATE: 20200601
